FAERS Safety Report 22071438 (Version 1)
Quarter: 2023Q1

REPORT INFORMATION
  Report Type: Spontaneous
  Country: US (occurrence: US)
  Receive Date: 20230307
  Receipt Date: 20230307
  Transmission Date: 20230417
  Serious: Yes (Other)
  Sender: FDA-Public Use
  Company Number: US-PFIZER INC-PV202300043878

PATIENT
  Age: 55 Year
  Sex: Female

DRUGS (1)
  1. XELJANZ [Suspect]
     Active Substance: TOFACITINIB CITRATE
     Indication: Pyoderma gangrenosum
     Dosage: 10 MG, 2X/DAY

REACTIONS (3)
  - Inflammatory bowel disease [Unknown]
  - Deep vein thrombosis [Unknown]
  - Off label use [Unknown]
